FAERS Safety Report 6167125-4 (Version None)
Quarter: 2009Q2

REPORT INFORMATION
  Report Type: 
  Country: None (occurrence: None)
  Receive Date: 20090424
  Receipt Date: 20090415
  Transmission Date: 20091009
  Serious: Yes (Other)
  Sender: FDA-Public Use
  Company Number: US-JNJCH-2009010636

PATIENT
  Sex: Female

DRUGS (1)
  1. BENADRYL [Suspect]
     Indication: DRUG ABUSE
     Dosage: TEXT:15 TABLETS
     Route: 048

REACTIONS (2)
  - CONVULSION [None]
  - INTENTIONAL OVERDOSE [None]
